FAERS Safety Report 9925250 (Version 2)
Quarter: 2014Q1

REPORT INFORMATION
  Report Type: Spontaneous
  Country: US (occurrence: US)
  Receive Date: 20140226
  Receipt Date: 20140226
  Transmission Date: 20141002
  Serious: Yes (Other)
  Sender: FDA-Public Use
  Company Number: US-BRACCO-009719

PATIENT
  Age: 53 Year
  Sex: Female

DRUGS (1)
  1. ISOVUE [Suspect]
     Indication: COMPUTERISED TOMOGRAM ABDOMEN
     Dates: start: 20130603, end: 20130603

REACTIONS (1)
  - Anaphylactic reaction [Recovered/Resolved]
